FAERS Safety Report 24327373 (Version 5)
Quarter: 2025Q4

REPORT INFORMATION
  Report Type: Spontaneous
  Country: EU (occurrence: EU)
  Receive Date: 20240917
  Receipt Date: 20251209
  Transmission Date: 20260117
  Serious: Yes (Other)
  Sender: RANBAXY
  Company Number: EU-SUN PHARMACEUTICAL INDUSTRIES LTD-2024R1-468000

PATIENT
  Age: 37 Year
  Sex: Female

DRUGS (9)
  1. PREGABALIN [Suspect]
     Active Substance: PREGABALIN
     Indication: Bipolar II disorder
     Dosage: 50 MILLIGRAM, DAILY
     Route: 065
  2. PREGABALIN [Suspect]
     Active Substance: PREGABALIN
     Indication: Anxiety
     Dosage: 100 MILLIGRAM, DAILY
     Route: 065
  3. PREGABALIN [Suspect]
     Active Substance: PREGABALIN
     Indication: Depression
  4. PREGABALIN [Suspect]
     Active Substance: PREGABALIN
     Indication: Alcoholism
  5. PREGABALIN [Suspect]
     Active Substance: PREGABALIN
     Indication: Alcohol use disorder
  6. QUETIAPINE [Concomitant]
     Active Substance: QUETIAPINE
     Indication: Anxiety
     Dosage: 150 MILLIGRAMS, SIX MONTHS
     Route: 065
  7. QUETIAPINE [Concomitant]
     Active Substance: QUETIAPINE
     Indication: Alcohol use disorder
     Dosage: 200 MILLIGRAM, DAILY
     Route: 065
  8. QUETIAPINE [Concomitant]
     Active Substance: QUETIAPINE
     Indication: Depression
  9. QUETIAPINE [Concomitant]
     Active Substance: QUETIAPINE
     Indication: Bipolar II disorder

REACTIONS (9)
  - Suicidal ideation [Recovered/Resolved]
  - Self-destructive behaviour [Recovering/Resolving]
  - Bipolar disorder [Unknown]
  - Condition aggravated [Recovering/Resolving]
  - Self-injurious ideation [Recovering/Resolving]
  - Drug ineffective for unapproved indication [Recovered/Resolved]
  - Depressive symptom [Recovered/Resolved]
  - Crying [Recovering/Resolving]
  - Feeling of despair [Recovering/Resolving]
